FAERS Safety Report 25999149 (Version 2)
Quarter: 2025Q4

REPORT INFORMATION
  Report Type: Spontaneous
  Country: JP (occurrence: JP)
  Receive Date: 20251105
  Receipt Date: 20251118
  Transmission Date: 20260118
  Serious: Yes (Other)
  Sender: INSMED
  Company Number: JP-INSMED, INC.-2025-05533-JP

PATIENT
  Age: 71 Year
  Sex: Female

DRUGS (4)
  1. ARIKAYCE [Suspect]
     Active Substance: AMIKACIN
     Indication: Mycobacterium avium complex infection
     Dosage: ON 16-SEP-202X+2, ALIS INITIATED. ON 23-MAR-202X+4, ALIS DISCONTINUED.
     Route: 055
  2. ARIKAYCE [Suspect]
     Active Substance: AMIKACIN
     Dosage: FEB-202X+5, TREATMENT WITH ALIS WAS RESUMED. UPON CONFIRMING ALIS RESISTANCE, TREATMENT WITH ALIS WA
     Route: 055
  3. ISONIAZID [Concomitant]
     Active Substance: ISONIAZID
     Indication: Mycobacterium avium complex infection
     Dosage: UNK, UNK
     Route: 065
  4. CLARITHROMYCIN [Concomitant]
     Active Substance: CLARITHROMYCIN
     Indication: Mycobacterium avium complex infection
     Dosage: UNK, UNK
     Route: 065

REACTIONS (2)
  - Mycobacterium avium complex infection [Unknown]
  - Drug resistance [Unknown]
